FAERS Safety Report 13697158 (Version 1)
Quarter: 2017Q2

REPORT INFORMATION
  Report Type: Spontaneous
  Country: US (occurrence: US)
  Receive Date: 20170628
  Receipt Date: 20170628
  Transmission Date: 20170830
  Serious: Yes (Other)
  Sender: FDA-Public Use
  Company Number: None

PATIENT
  Age: 79 Year
  Sex: Female
  Weight: 88.98 kg

DRUGS (17)
  1. HYDRALAZINE [Suspect]
     Active Substance: HYDRALAZINE HYDROCHLORIDE
     Indication: HYPERTENSION
     Dosage: ?          QUANTITY:I T/T?LET;?
     Route: 048
     Dates: start: 20170515, end: 20170606
  2. LIMBREL [Concomitant]
     Active Substance: FLAVOCOXID
  3. GLIMEPIRIDE. [Concomitant]
     Active Substance: GLIMEPIRIDE
  4. AMLODIPINE [Concomitant]
     Active Substance: AMLODIPINE BESYLATE
  5. POTASSIUM CHLORIDE ER [Concomitant]
     Active Substance: POTASSIUM CHLORIDE
  6. CLINDAMYCIN PHOSPHATE TOPICAL SOLUTION [Concomitant]
  7. ALLOPURINOL. [Concomitant]
     Active Substance: ALLOPURINOL
  8. CLOPIDOGREL [Concomitant]
     Active Substance: CLOPIDOGREL BISULFATE
  9. TRITIN OINTMENT CREAM [Concomitant]
  10. PHILLIPS GOOD FIBER GUMMIES [Concomitant]
  11. LABETALOL [Concomitant]
     Active Substance: LABETALOL\LABETALOL HYDROCHLORIDE
  12. PRAVASTATIN. [Concomitant]
     Active Substance: PRAVASTATIN
  13. SYNTHROID [Concomitant]
     Active Substance: LEVOTHYROXINE SODIUM
  14. LOSARTAN. [Concomitant]
     Active Substance: LOSARTAN
  15. CUCICHINE [Concomitant]
  16. VITAMIN D [Concomitant]
     Active Substance: CHOLECALCIFEROL
  17. FOLTANX [Concomitant]

REACTIONS (3)
  - Pruritus [None]
  - Palpitations [None]
  - Headache [None]

NARRATIVE: CASE EVENT DATE: 20170601
